FAERS Safety Report 24139204 (Version 1)
Quarter: 2024Q3

REPORT INFORMATION
  Report Type: Spontaneous
  Country: CA (occurrence: CA)
  Receive Date: 20240726
  Receipt Date: 20240726
  Transmission Date: 20241017
  Serious: Yes (Other)
  Sender: BRISTOL MYERS SQUIBB
  Company Number: CA-BRISTOL-MYERS SQUIBB COMPANY-2024-117407

PATIENT
  Age: 72 Year
  Sex: Male

DRUGS (7)
  1. AZACITIDINE [Suspect]
     Active Substance: AZACITIDINE
     Indication: Acute myeloid leukaemia
     Dosage: POWDER FOR?SUSPENSION?SUBCUTANEOUS
  2. COVID-19 VACCINE MRNA [Concomitant]
     Indication: COVID-19 immunisation
     Route: 042
  3. COVID-19 VACCINE MRNA [Concomitant]
     Route: 030
  4. COVID-19 VACCINE MRNA [Concomitant]
     Route: 030
  5. VENETOCLAX [Concomitant]
     Active Substance: VENETOCLAX
     Indication: Acute myeloid leukaemia
     Route: 048
  6. VENETOCLAX [Concomitant]
     Active Substance: VENETOCLAX
     Route: 048
  7. VENETOCLAX [Concomitant]
     Active Substance: VENETOCLAX
     Route: 048

REACTIONS (6)
  - Localised infection [Recovered/Resolved]
  - Lung opacity [Recovered/Resolved]
  - Nodule [Recovered/Resolved]
  - Pneumonia [Recovered/Resolved]
  - Pulmonary sepsis [Recovered/Resolved]
  - Upper respiratory tract infection [Recovered/Resolved]
